FAERS Safety Report 12555799 (Version 1)
Quarter: 2016Q3

REPORT INFORMATION
  Report Type: Spontaneous
  Country: US (occurrence: None)
  Receive Date: 20160713
  Receipt Date: 20160713
  Transmission Date: 20161109
  Serious: Yes (Hospitalization)
  Sender: FDA-Public Use
  Company Number: None

PATIENT
  Age: 60 Year
  Sex: Female
  Weight: 172.5 kg

DRUGS (1)
  1. DOXIL [Suspect]
     Active Substance: DOXORUBICIN HYDROCHLORIDE
     Dates: end: 20160616

REACTIONS (7)
  - Confusional state [None]
  - Lumbar spinal stenosis [None]
  - Nausea [None]
  - Fatigue [None]
  - Dehydration [None]
  - Spondylolisthesis [None]
  - Dizziness [None]

NARRATIVE: CASE EVENT DATE: 20160622
